FAERS Safety Report 5339811-7 (Version None)
Quarter: 2007Q2

REPORT INFORMATION
  Report Type: 
  Country: None (occurrence: None)
  Receive Date: 20070524
  Receipt Date: 20070515
  Transmission Date: 20071010
  Serious: Yes (Hospitalization)
  Sender: FDA-Public Use
  Company Number: B0471651A

PATIENT
  Age: 44 Year
  Sex: Female

DRUGS (3)
  1. LITHIUM SALT (FORMULATION UNKNOWN) (LITHIUM SALT) (GENERIC) [Suspect]
     Indication: BIPOLAR DISORDER
  2. CARBAMAZEPINE [Concomitant]
  3. PERPHENAZINE [Concomitant]

REACTIONS (14)
  - BLOOD CREATININE INCREASED [None]
  - BLOOD UREA INCREASED [None]
  - CEREBELLAR ATAXIA [None]
  - CEREBRAL ATROPHY [None]
  - COORDINATION ABNORMAL [None]
  - DYSARTHRIA [None]
  - ERYTHEMA MULTIFORME [None]
  - GLIOSIS [None]
  - HYPERTONIA [None]
  - LETHARGY [None]
  - METABOLIC DISORDER [None]
  - NYSTAGMUS [None]
  - SPEECH DISORDER [None]
  - THERAPEUTIC AGENT TOXICITY [None]
